FAERS Safety Report 20707447 (Version 5)
Quarter: 2022Q4

REPORT INFORMATION
  Report Type: Spontaneous
  Country: US (occurrence: US)
  Receive Date: 20220413
  Receipt Date: 20221207
  Transmission Date: 20230113
  Serious: No
  Sender: FDA-Public Use
  Company Number: US-PFIZER INC-202200074806

PATIENT
  Age: 48 Year
  Sex: Female

DRUGS (1)
  1. IBRANCE [Suspect]
     Active Substance: PALBOCICLIB
     Indication: Breast cancer metastatic
     Dosage: UNK

REACTIONS (11)
  - White blood cell count decreased [Recovered/Resolved]
  - Rash [Unknown]
  - Oropharyngeal pain [Unknown]
  - Madarosis [Unknown]
  - Alopecia [Unknown]
  - COVID-19 [Unknown]
  - Sciatica [Unknown]
  - Back pain [Unknown]
  - Limb discomfort [Unknown]
  - Insomnia [Unknown]
  - Neoplasm progression [Unknown]

NARRATIVE: CASE EVENT DATE: 20220112
